FAERS Safety Report 25130935 (Version 1)
Quarter: 2025Q1

REPORT INFORMATION
  Report Type: Spontaneous
  Country: US (occurrence: None)
  Receive Date: 20250327
  Receipt Date: 20250327
  Transmission Date: 20250408
  Serious: Yes (Life-Threatening, Disabling, Other)
  Sender: FDA-CTU
  Company Number: None

PATIENT
  Age: 44 Year
  Sex: Female
  Weight: 110.25 kg

DRUGS (16)
  1. LITHIUM [Suspect]
     Active Substance: LITHIUM
     Indication: Bipolar disorder
  2. LITHIUM [Suspect]
     Active Substance: LITHIUM
     Indication: Anxiety
  3. LITHIUM [Suspect]
     Active Substance: LITHIUM
     Indication: Anxiety
  4. LITHIUM [Suspect]
     Active Substance: LITHIUM
     Indication: Anxiety
  5. LITHIUM [Suspect]
     Active Substance: LITHIUM
     Indication: Anxiety
  6. Lamotrigine 400 MG [Concomitant]
  7. ARIPIPRAZOLE [Suspect]
     Active Substance: ARIPIPRAZOLE
  8. PRISTIQ EXTENDED-RELEASE [Concomitant]
     Active Substance: DESVENLAFAXINE SUCCINATE
  9. buspirone 30 mg [Concomitant]
  10. Vyvanse 50 mg, [Concomitant]
  11. lorazepam 1 mg, [Concomitant]
  12. Folic acid 1 mg [Concomitant]
  13. Vitamin D 125 mcg, [Concomitant]
  14. PMS relief gummies [Concomitant]
  15. MELATONIN [Concomitant]
     Active Substance: MELATONIN
  16. FLUOXETINE [Suspect]
     Active Substance: FLUOXETINE HYDROCHLORIDE

REACTIONS (29)
  - Visual impairment [None]
  - Photophobia [None]
  - Astigmatism [None]
  - Anxiety [None]
  - Depression [None]
  - Irritability [None]
  - Hypothyroidism [None]
  - Weight increased [None]
  - Glucose tolerance impaired [None]
  - Dry mouth [None]
  - Gingival disorder [None]
  - Speech disorder [None]
  - Tardive dyskinesia [None]
  - Parkinsonism [None]
  - Urinary incontinence [None]
  - Blood cholesterol increased [None]
  - Skin disorder [None]
  - Polycystic ovarian syndrome [None]
  - Hair colour changes [None]
  - Hair texture abnormal [None]
  - Arrhythmia [None]
  - Skin odour abnormal [None]
  - Cognitive disorder [None]
  - Road traffic accident [None]
  - Tooth loss [None]
  - Acne [None]
  - Skin striae [None]
  - Inability to afford medication [None]
  - Impaired quality of life [None]

NARRATIVE: CASE EVENT DATE: 20150101
